FAERS Safety Report 7086377-X (Version None)
Quarter: 2010Q4

REPORT INFORMATION
  Report Type: 
  Country: None (occurrence: None)
  Receive Date: 20101026
  Receipt Date: 20101019
  Transmission Date: 20110411
  Serious: Yes (Disabling)
  Sender: FDA-Public Use
  Company Number: OSCN-NO-0604S-0115

PATIENT
  Age: 71 Year
  Sex: Male
  Weight: 63 kg

DRUGS (1)
  1. OMNISCAN [Suspect]
     Indication: RENAL FAILURE
     Dosage: 40 ML, SINGLE DOSE, I.V.
     Route: 042
     Dates: start: 20060315, end: 20060315

REACTIONS (4)
  - INFECTION [None]
  - INTERMITTENT CLAUDICATION [None]
  - NEPHROGENIC SYSTEMIC FIBROSIS [None]
  - SUDDEN CARDIAC DEATH [None]
